FAERS Safety Report 7850884-X (Version None)
Quarter: 2011Q4

REPORT INFORMATION
  Report Type: 
  Country: None (occurrence: None)
  Receive Date: 20111021
  Receipt Date: 20111012
  Transmission Date: 20120403
  Serious: Yes (Hospitalization)
  Sender: FDA-Public Use
  Company Number: 1073279

PATIENT
  Age: 57 Year
  Sex: Male

DRUGS (2)
  1. LIDOCAINE HCL [Suspect]
     Indication: PRODUCT USED FOR UNKNOWN INDICATION
     Dosage: 2.0ML,
  2. ADALAT [Suspect]
     Indication: PRODUCT USED FOR UNKNOWN INDICATION
     Dosage: 30MG, 1 EVERY 1 DAY(S)

REACTIONS (4)
  - CONDITION AGGRAVATED [None]
  - PSORIASIS [None]
  - DERMATITIS EXFOLIATIVE [None]
  - CELLULITIS [None]
